FAERS Safety Report 12174896 (Version 2)
Quarter: 2016Q2

REPORT INFORMATION
  Report Type: Spontaneous
  Country: DE (occurrence: DE)
  Receive Date: 20160314
  Receipt Date: 20160520
  Transmission Date: 20160815
  Serious: Yes (Hospitalization, Other)
  Sender: FDA-Public Use
  Company Number: DE-NAPPMUNDI-DEU-2016-0017598

PATIENT
  Sex: Male

DRUGS (4)
  1. PALLADON 2,6MG HARTKAPSELN [Suspect]
     Active Substance: HYDROMORPHONE
     Indication: PAIN
     Dosage: UNK, PRN
     Route: 048
  2. PALLADON RETARD 8 MG [Suspect]
     Active Substance: HYDROMORPHONE HYDROCHLORIDE
     Indication: PAIN
     Dosage: 8 MG, TID
     Route: 065
     Dates: start: 2010
  3. DIPIDOLOR [Concomitant]
     Active Substance: PIRITRAMIDE
  4. PALLADON INJEKT 2MG [Suspect]
     Active Substance: HYDROMORPHONE HYDROCHLORIDE
     Indication: PAIN
     Dosage: UNK UNK, PRN
     Route: 065
     Dates: start: 2010

REACTIONS (5)
  - Oedema peripheral [Not Recovered/Not Resolved]
  - Wound complication [Not Recovered/Not Resolved]
  - Wound [Not Recovered/Not Resolved]
  - Oedema [Not Recovered/Not Resolved]
  - Skin burning sensation [Not Recovered/Not Resolved]
